FAERS Safety Report 6901571-3 (Version None)
Quarter: 2010Q3

REPORT INFORMATION
  Report Type: 
  Country: None (occurrence: None)
  Receive Date: 20100803
  Receipt Date: 20080216
  Transmission Date: 20110219
  Serious: No
  Sender: FDA-Public Use
  Company Number: US-PFIZER INC-2008016048

PATIENT
  Sex: Female

DRUGS (5)
  1. LYRICA [Suspect]
     Indication: FIBROMYALGIA
     Dates: start: 20070101, end: 20070101
  2. LYRICA [Suspect]
     Indication: CONVULSION PROPHYLAXIS
  3. ALL OTHER THERAPEUTIC PRODUCTS [Suspect]
     Indication: CONVULSION PROPHYLAXIS
  4. DEPAKOTE [Concomitant]
  5. NORCO [Concomitant]

REACTIONS (5)
  - ADVERSE DRUG REACTION [None]
  - ARTHRITIS [None]
  - BALANCE DISORDER [None]
  - DIZZINESS [None]
  - SWELLING [None]
